FAERS Safety Report 13430336 (Version 1)
Quarter: 2017Q2

REPORT INFORMATION
  Report Type: Report from Study
  Country: NZ (occurrence: NZ)
  Receive Date: 20170412
  Receipt Date: 20170412
  Transmission Date: 20170912
  Serious: Yes (Hospitalization)
  Sender: FDA-Public Use
  Company Number: NZ-JNJFOC-20160509329

PATIENT
  Age: 78 Year
  Sex: Male

DRUGS (12)
  1. GLYCERYL TRINITRATE [Concomitant]
     Dosage: 2 PUFF AS PRN
     Route: 060
  2. BEZAFIBRATE [Concomitant]
     Active Substance: BEZAFIBRATE
     Indication: HYPERLIPIDAEMIA
     Route: 048
  3. DILTIAZEM [Concomitant]
     Indication: MYOCARDIAL ISCHAEMIA
     Route: 065
  4. PANTOPRAZOLE [Concomitant]
     Active Substance: PANTOPRAZOLE
     Indication: PROPHYLAXIS AGAINST GASTROINTESTINAL ULCER
     Route: 048
  5. METOPROLOL [Concomitant]
     Indication: MYOCARDIAL ISCHAEMIA
     Route: 048
  6. SLOW K [Concomitant]
     Active Substance: POTASSIUM CHLORIDE
     Indication: MINERAL SUPPLEMENTATION
     Route: 048
  7. CANDESARTAN [Concomitant]
     Indication: HYPERTENSION
     Route: 048
  8. DOXAZOSIN [Concomitant]
     Indication: HYPERTENSION
     Route: 048
  9. ISOSORBIDE MONONITRATE. [Concomitant]
     Active Substance: ISOSORBIDE MONONITRATE
     Indication: MYOCARDIAL ISCHAEMIA
     Route: 048
  10. PLACEBO [Suspect]
     Route: 048
  11. NAPROXEN [Concomitant]
     Route: 065
  12. DOXAZOSIN [Concomitant]
     Indication: HYPERTENSION
     Route: 048

REACTIONS (1)
  - Streptococcal bacteraemia [Recovered/Resolved]

NARRATIVE: CASE EVENT DATE: 20160502
